FAERS Safety Report 7031672-3 (Version None)
Quarter: 2010Q4

REPORT INFORMATION
  Report Type: 
  Country: None (occurrence: None)
  Receive Date: 20101001
  Receipt Date: 20100921
  Transmission Date: 20110411
  Serious: Yes (Hospitalization)
  Sender: FDA-Public Use
  Company Number: 019131

PATIENT
  Sex: Male
  Weight: 81.6 kg

DRUGS (5)
  1. CIMZIA [Suspect]
     Indication: CROHN'S DISEASE
     Dosage: 400 MG 1X.MONTH; SUBCUTANEOUS
     Route: 058
     Dates: start: 20100802
  2. IMURAN [Concomitant]
  3. PREDNISONE [Concomitant]
  4. MULTI-VITAMINS [Concomitant]
  5. BENICAR [Concomitant]

REACTIONS (4)
  - ACCIDENT AT WORK [None]
  - CONSTIPATION [None]
  - FOOT FRACTURE [None]
  - PAIN [None]
